FAERS Safety Report 11718261 (Version 1)
Quarter: 2015Q4

REPORT INFORMATION
  Report Type: Spontaneous
  Country: US (occurrence: None)
  Receive Date: 20151109
  Receipt Date: 20151109
  Transmission Date: 20160304
  Serious: No
  Sender: FDA-Public Use
  Company Number: None

PATIENT
  Age: 67 Year
  Sex: Female
  Weight: 114.76 kg

DRUGS (1)
  1. WARFARIN 2.5MG AMNEAL NDC65162076310 [Suspect]
     Active Substance: WARFARIN
     Indication: ATRIAL FIBRILLATION
     Dosage: TAKE 2 TABLETS THURSDAY AND SATURDAY AND 1 TABLET REST OF THE
     Route: 048
     Dates: start: 20150930

REACTIONS (2)
  - Product measured potency issue [None]
  - International normalised ratio decreased [None]

NARRATIVE: CASE EVENT DATE: 20151005
